FAERS Safety Report 5354327-X (Version None)
Quarter: 2007Q2

REPORT INFORMATION
  Report Type: 
  Country: None (occurrence: None)
  Receive Date: 20070521
  Receipt Date: 20070212
  Transmission Date: 20071010
  Serious: No
  Sender: FDA-Public Use
  Company Number: WAES 0702USA01792

PATIENT
  Age: 65 Year
  Sex: Female

DRUGS (8)
  1. JANUVIA [Suspect]
     Indication: BLOOD GLUCOSE
     Dosage: 100 MG, DAILY, PO
     Route: 048
     Dates: start: 20070129
  2. CENESTAN [Concomitant]
  3. CYMBALTA [Concomitant]
  4. KLONOPIN [Concomitant]
  5. LIPITOR [Concomitant]
  6. PROTONIX [Concomitant]
  7. RITALIN [Concomitant]
  8. SYNTHROID [Concomitant]

REACTIONS (1)
  - BLOOD GLUCOSE DECREASED [None]
